FAERS Safety Report 6714114-4 (Version None)
Quarter: 2010Q2

REPORT INFORMATION
  Report Type: 
  Country: None (occurrence: None)
  Receive Date: 20100506
  Receipt Date: 20100423
  Transmission Date: 20101027
  Serious: Yes (Death)
  Sender: FDA-Public Use
  Company Number: US-WATSON-2010-05818

PATIENT

DRUGS (6)
  1. TOPIRAMATE [Suspect]
     Indication: CONVULSION
     Dosage: UNK
  2. GABAPENTIN [Suspect]
     Indication: CONVULSION
     Dosage: UNK
  3. LAMOTRIGINE [Suspect]
     Indication: CONVULSION
     Dosage: UNK
  4. LEVETIRACETAM [Suspect]
     Indication: CONVULSION
     Dosage: UNK
  5. PRIMIDONE [Suspect]
     Indication: CONVULSION
     Dosage: UNK
  6. ZONISAMIDE (WATSON LABORATORIES) [Suspect]
     Indication: CONVULSION
     Dosage: UNK

REACTIONS (2)
  - AGGRESSION [None]
  - COMPLETED SUICIDE [None]
